FAERS Safety Report 7669724-7 (Version None)
Quarter: 2011Q3

REPORT INFORMATION
  Report Type: 
  Country: None (occurrence: None)
  Receive Date: 20110808
  Receipt Date: 20110803
  Transmission Date: 20111222
  Serious: Yes (Life-Threatening, Other)
  Sender: FDA-Public Use
  Company Number: JP-PFIZER INC-2011164907

PATIENT
  Age: 36 Year
  Sex: Female
  Weight: 52 kg

DRUGS (7)
  1. ALLEGRA [Concomitant]
     Indication: RHINITIS ALLERGIC
     Dosage: 60 MG, 2X/DAY
     Route: 048
     Dates: start: 20110701, end: 20110701
  2. MONTELUKAST SODIUM [Concomitant]
     Indication: RHINITIS ALLERGIC
     Dosage: 10 MG, DAILY
     Route: 048
     Dates: start: 20110701, end: 20110701
  3. ISEPACIN [Concomitant]
     Indication: PHARYNGITIS
     Dosage: 400 MG, DAILY
     Route: 041
     Dates: start: 20110701, end: 20110701
  4. CLINDAMYCIN HCL [Suspect]
     Indication: PHARYNGITIS
     Dosage: 600 MG, DAILY
     Route: 041
     Dates: start: 20110701, end: 20110701
  5. DEXTROMETHORPHAN HYDROBROMIDE [Concomitant]
     Indication: COUGH
     Dosage: UNK
     Route: 048
     Dates: start: 20110701, end: 20110701
  6. CLARITHROMYCIN [Suspect]
     Indication: PHARYNGITIS
     Dosage: 200 MG, 2X/DAY
     Route: 048
     Dates: start: 20110701, end: 20110701
  7. LANSOPRAZOLE [Concomitant]
     Indication: GASTROOESOPHAGEAL REFLUX DISEASE
     Dosage: 15 MG, DAILY
     Route: 048
     Dates: start: 20110701, end: 20110701

REACTIONS (2)
  - DYSPNOEA [None]
  - ERYTHEMA [None]
